FAERS Safety Report 19400617 (Version 1)
Quarter: 2021Q2

REPORT INFORMATION
  Report Type: Spontaneous
  Country: US (occurrence: US)
  Receive Date: 20210610
  Receipt Date: 20210610
  Transmission Date: 20210717
  Serious: Yes (Other)
  Sender: FDA-Public Use
  Company Number: US-GLAXOSMITHKLINE-USCH2021035534

PATIENT
  Age: 88 Year
  Sex: Male

DRUGS (1)
  1. SENSODYNE FULL PROTECTION [Suspect]
     Active Substance: POTASSIUM NITRATE\SODIUM FLUORIDE
     Indication: PRODUCT USED FOR UNKNOWN INDICATION
     Dosage: UNK
     Dates: start: 20210603

REACTIONS (3)
  - Dysgeusia [Unknown]
  - Inappropriate schedule of product administration [Unknown]
  - Burn oral cavity [Recovering/Resolving]

NARRATIVE: CASE EVENT DATE: 20210604
